FAERS Safety Report 4593896-4 (Version None)
Quarter: 2005Q1

REPORT INFORMATION
  Report Type: 
  Country: None (occurrence: None)
  Receive Date: 20050301
  Receipt Date: 20050224
  Transmission Date: 20050727
  Serious: Yes (Disabling)
  Sender: FDA-Public Use
  Company Number: US-MERCK-0502USA03368

PATIENT
  Age: 72 Year
  Sex: Female

DRUGS (6)
  1. FOSAMAX [Suspect]
     Indication: FRACTURE
     Route: 048
     Dates: start: 20041001, end: 20050201
  2. TIAZAC [Concomitant]
     Route: 065
  3. DIURETIC (UNSPECIFIED) [Concomitant]
     Route: 065
  4. COUMADIN [Concomitant]
     Route: 065
  5. ALAVERT [Concomitant]
     Route: 065
  6. [THERAPY UNSPECIFIED] [Concomitant]
     Route: 065

REACTIONS (1)
  - DYSPNOEA [None]
